FAERS Safety Report 24133170 (Version 2)
Quarter: 2024Q3

REPORT INFORMATION
  Report Type: Spontaneous
  Country: CN (occurrence: CN)
  Receive Date: 20240724
  Receipt Date: 20240801
  Transmission Date: 20241016
  Serious: Yes (Other)
  Sender: MERCK
  Company Number: CN-009507513-2407CHN012089

PATIENT
  Age: 50 Year
  Sex: Male
  Weight: 65 kg

DRUGS (2)
  1. INVANZ [Suspect]
     Active Substance: ERTAPENEM SODIUM
     Indication: Abdominal infection
     Dosage: 1 G, QD
     Route: 041
     Dates: start: 20240626, end: 20240629
  2. SODIUM CHLORIDE [Concomitant]
     Active Substance: SODIUM CHLORIDE
     Indication: Medication dilution
     Dosage: 100 ML, QD
     Route: 041
     Dates: start: 20240626, end: 20240629

REACTIONS (5)
  - Toxic encephalopathy [Unknown]
  - Loss of consciousness [Unknown]
  - Delirium [Unknown]
  - Nervous system disorder [Unknown]
  - Decreased appetite [Unknown]

NARRATIVE: CASE EVENT DATE: 20240101
